FAERS Safety Report 10683449 (Version 1)
Quarter: 2014Q4

REPORT INFORMATION
  Report Type: Spontaneous
  Country: IT (occurrence: IT)
  Receive Date: 20141230
  Receipt Date: 20141230
  Transmission Date: 20150529
  Serious: Yes (Other)
  Sender: FDA-Public Use
  Company Number: IT-BAXTER-2014BAX075693

PATIENT
  Age: 5 Year
  Sex: Female

DRUGS (5)
  1. FLUCONAZOLE INJECTION, USP [Suspect]
     Active Substance: FLUCONAZOLE
     Indication: SUPPORTIVE CARE
     Route: 042
  2. CHLORHEXIDINE [Suspect]
     Active Substance: CHLORHEXIDINE
     Indication: SUPPORTIVE CARE
     Route: 048
  3. MORPHINE [Suspect]
     Active Substance: MORPHINE
     Indication: SUPPORTIVE CARE
     Route: 042
  4. CEFTAZIDIME. [Suspect]
     Active Substance: CEFTAZIDIME
     Indication: SUPPORTIVE CARE
     Route: 042
  5. MORPHINE [Suspect]
     Active Substance: MORPHINE
     Route: 042

REACTIONS (1)
  - No therapeutic response [Recovered/Resolved]
